FAERS Safety Report 9299286 (Version 2)
Quarter: 2013Q2

REPORT INFORMATION
  Report Type: Spontaneous
  Country: DK (occurrence: DK)
  Receive Date: 20130520
  Receipt Date: 20130603
  Transmission Date: 20140414
  Serious: Yes (Hospitalization)
  Sender: FDA-Public Use
  Company Number: PHHY2013DK049313

PATIENT
  Age: 73 Year
  Sex: Female

DRUGS (1)
  1. METOPROLOLSUCCINAT HEXAL [Suspect]
     Indication: HYPERTENSION
     Dosage: 50 MG, QD
     Route: 048

REACTIONS (5)
  - Anaphylactic shock [Recovered/Resolved]
  - Thrombosis [Recovered/Resolved]
  - Loss of consciousness [Recovered/Resolved]
  - Product substitution issue [Recovered/Resolved]
  - Cardiac fibrillation [Recovered/Resolved]
